FAERS Safety Report 4958254-9 (Version None)
Quarter: 2006Q1

REPORT INFORMATION
  Report Type: 
  Country: None (occurrence: None)
  Receive Date: 20060330
  Receipt Date: 20060324
  Transmission Date: 20060701
  Serious: Yes (Other)
  Sender: FDA-Public Use
  Company Number: GXKR2006DE01686

PATIENT
  Age: 38 Year
  Sex: Female

DRUGS (3)
  1. LAMOTRIGINE (HEXAL AG) [Suspect]
     Indication: DRUG USE FOR UNKNOWN INDICATION
     Dosage: 50MG PER DAY
     Route: 048
  2. VALPROATE SODIUM [Concomitant]
     Route: 065
  3. INTERFERON BETA [Concomitant]
     Route: 065

REACTIONS (3)
  - ANAPHYLACTOID REACTION [None]
  - CHILLS [None]
  - RASH [None]
